FAERS Safety Report 10034873 (Version 1)
Quarter: 2014Q1

REPORT INFORMATION
  Report Type: Spontaneous
  Country: IT (occurrence: None)
  Receive Date: 20140321
  Receipt Date: 20140321
  Transmission Date: 20141002
  Serious: Yes (Hospitalization)
  Sender: FDA-Public Use
  Company Number: AUR-APL-2014-03147

PATIENT
  Age: 12 Year
  Sex: Female
  Weight: 38.9 kg

DRUGS (1)
  1. RISPERIDONE [Suspect]
     Indication: BIPOLAR DISORDER
     Dosage: (0.75 MG)
     Route: 048

REACTIONS (7)
  - Hypertension [None]
  - Brain oedema [None]
  - Convulsion [None]
  - Asthenia [None]
  - Decreased appetite [None]
  - Headache [None]
  - Insomnia [None]
